FAERS Safety Report 24351927 (Version 1)
Quarter: 2024Q3

REPORT INFORMATION
  Report Type: Report from Study
  Country: BG (occurrence: BG)
  Receive Date: 20240923
  Receipt Date: 20240923
  Transmission Date: 20241016
  Serious: No
  Sender: ROCHE
  Company Number: BG-ROCHE-2982198

PATIENT
  Age: 62 Year
  Sex: Female
  Weight: 64.0 kg

DRUGS (16)
  1. HERCEPTIN [Suspect]
     Active Substance: TRASTUZUMAB
     Indication: HER2 positive breast cancer
     Dosage: MOST RECENT DOSE PRIOR TO THE EVENT: 02/JUN/2020
     Route: 041
     Dates: start: 20180817, end: 20190423
  2. HERCEPTIN [Suspect]
     Active Substance: TRASTUZUMAB
     Route: 041
     Dates: start: 20190605, end: 20191210
  3. HERCEPTIN [Suspect]
     Active Substance: TRASTUZUMAB
     Dosage: MOST RECENT DOSE: 16/MAR/2023
     Route: 041
     Dates: start: 20200602, end: 20230316
  4. TAXOTERE [Suspect]
     Active Substance: DOCETAXEL
     Indication: HER2 positive breast cancer
     Route: 042
     Dates: start: 20180720, end: 20190104
  5. TAXOTERE [Suspect]
     Active Substance: DOCETAXEL
     Route: 042
     Dates: start: 20190104, end: 20190423
  6. XELODA [Suspect]
     Active Substance: CAPECITABINE
     Indication: HER2 positive breast cancer
     Dosage: OTHER
     Route: 048
     Dates: start: 20200602, end: 20210123
  7. XELODA [Suspect]
     Active Substance: CAPECITABINE
     Dosage: OTHER?1 TO 14 DAY
     Route: 048
     Dates: start: 20230425, end: 20230807
  8. TAXOL [Suspect]
     Active Substance: PACLITAXEL
     Indication: HER2 positive breast cancer
     Route: 042
     Dates: start: 20210205, end: 20210927
  9. KADCYLA [Suspect]
     Active Substance: ADO-TRASTUZUMAB EMTANSINE
     Indication: HER2 positive breast cancer
     Route: 042
     Dates: start: 20200206, end: 20200504
  10. KADCYLA [Suspect]
     Active Substance: ADO-TRASTUZUMAB EMTANSINE
     Route: 042
     Dates: start: 20230925, end: 20231030
  11. NAVELBINE [Suspect]
     Active Substance: VINORELBINE TARTRATE
     Indication: HER2 positive breast cancer
     Dosage: OTHER
     Route: 042
     Dates: start: 20190605, end: 20191217
  12. ZOFRAN [Concomitant]
     Active Substance: ONDANSETRON HYDROCHLORIDE
     Indication: Vomiting
     Route: 048
     Dates: start: 20181113, end: 20181117
  13. ALBUTEROL [Concomitant]
     Active Substance: ALBUTEROL
     Indication: Cough
     Dosage: ONGOING = CHECKED
     Route: 048
     Dates: start: 20200521
  14. XGEVA [Concomitant]
     Active Substance: DENOSUMAB
     Indication: Metastases to bone
     Route: 058
     Dates: start: 20220426, end: 20231113
  15. KETOTIFEN [Concomitant]
     Active Substance: KETOTIFEN
     Indication: Cough
     Dosage: ONGOING = CHECKED
     Route: 048
     Dates: start: 20200521
  16. ZOMETA [Concomitant]
     Active Substance: ZOLEDRONIC ACID
     Indication: Metastases to bone
     Route: 042
     Dates: start: 20200227, end: 20220326

REACTIONS (1)
  - COVID-19 [Recovered/Resolved]

NARRATIVE: CASE EVENT DATE: 20211007
